FAERS Safety Report 8418586-9 (Version None)
Quarter: 2012Q2

REPORT INFORMATION
  Report Type: 
  Country: None (occurrence: None)
  Receive Date: 20120607
  Receipt Date: 20120530
  Transmission Date: 20120825
  Serious: Yes (Hospitalization)
  Sender: FDA-Public Use
  Company Number: FR-ASTRAZENECA-2012SE36488

PATIENT
  Age: 25696 Day
  Sex: Female

DRUGS (4)
  1. PLAQUENIL [Suspect]
     Indication: SJOGREN'S SYNDROME
     Route: 048
     Dates: start: 20110901, end: 20120416
  2. ATACAND [Suspect]
     Indication: HYPERTENSION
     Route: 048
     Dates: start: 20100101
  3. EXTOVYL [Suspect]
     Indication: MENIERE'S DISEASE
     Route: 048
     Dates: start: 20100101
  4. TANGANIL [Suspect]
     Indication: MENIERE'S DISEASE
     Route: 048
     Dates: start: 20100101

REACTIONS (2)
  - CYTOLYTIC HEPATITIS [None]
  - RHABDOMYOLYSIS [None]
